FAERS Safety Report 6246065-6 (Version None)
Quarter: 2009Q2

REPORT INFORMATION
  Report Type: 
  Country: None (occurrence: None)
  Receive Date: 20090626
  Receipt Date: 20090122
  Transmission Date: 20091009
  Serious: No
  Sender: FDA-Public Use
  Company Number: A0764831A

PATIENT
  Sex: Female

DRUGS (8)
  1. IMITREX [Suspect]
     Indication: MIGRAINE
     Dosage: 100MG SINGLE DOSE
     Route: 048
  2. VICODIN [Concomitant]
  3. SOMA [Concomitant]
  4. PREMARIN [Concomitant]
  5. PROTONIX [Concomitant]
  6. PRAVACHOL [Concomitant]
  7. SYNTHROID [Concomitant]
  8. INDERAL [Concomitant]

REACTIONS (5)
  - ANXIETY [None]
  - CARDIAC FLUTTER [None]
  - DISCOMFORT [None]
  - HEART RATE INCREASED [None]
  - MALAISE [None]
